FAERS Safety Report 21652917 (Version 1)
Quarter: 2022Q4

REPORT INFORMATION
  Report Type: Spontaneous
  Country: HU (occurrence: HU)
  Receive Date: 20221128
  Receipt Date: 20221128
  Transmission Date: 20230112
  Serious: Yes (Other)
  Sender: FDA-Public Use
  Company Number: HU-002147023-NVSC2022HU215084

PATIENT
  Age: 53 Year
  Sex: Female

DRUGS (7)
  1. FULVESTRANT [Suspect]
     Active Substance: FULVESTRANT
     Indication: Invasive ductal breast carcinoma
     Dosage: 500 MG (ON THE 1 ST,15TH AND 29TH DAYS)
     Route: 030
  2. FULVESTRANT [Suspect]
     Active Substance: FULVESTRANT
     Dosage: 500 MG, QW
     Route: 030
  3. METFORMIN [Suspect]
     Active Substance: METFORMIN HYDROCHLORIDE
     Indication: Hyperglycaemia
     Dosage: 1700 MILLIGRAM, QD, 850 MG, BID
     Route: 065
  4. METFORMIN [Suspect]
     Active Substance: METFORMIN HYDROCHLORIDE
     Dosage: 850 MG, QD
     Route: 065
  5. METFORMIN [Suspect]
     Active Substance: METFORMIN HYDROCHLORIDE
     Dosage: 1000 MILLIGRAM, QD, 500 MG, BID
     Route: 065
  6. ALPELISIB [Suspect]
     Active Substance: ALPELISIB
     Indication: Invasive ductal breast carcinoma
     Dosage: 300 MILLIGRAM, QD, 150 MG, BID
     Route: 065
  7. ZOLEDRONIC ACID [Suspect]
     Active Substance: ZOLEDRONIC ACID
     Indication: Invasive ductal breast carcinoma
     Dosage: UNK
     Route: 065
     Dates: start: 201709

REACTIONS (3)
  - Thrombocytopenia [Recovered/Resolved]
  - Hyperglycaemia [Recovered/Resolved]
  - Rash [Unknown]
